FAERS Safety Report 10152741 (Version 2)
Quarter: 2014Q2

REPORT INFORMATION
  Report Type: Spontaneous
  Country: US (occurrence: US)
  Receive Date: 20140505
  Receipt Date: 20140505
  Transmission Date: 20141212
  Serious: Yes (Death, Hospitalization)
  Sender: FDA-Public Use
  Company Number: US-JNJFOC-20140406407

PATIENT
  Age: 61 Year
  Sex: Male
  Weight: 109.3 kg

DRUGS (11)
  1. XARELTO [Suspect]
     Indication: CEREBROVASCULAR ACCIDENT PROPHYLAXIS
     Route: 048
     Dates: start: 20120406, end: 20131214
  2. XARELTO [Suspect]
     Indication: ATRIAL FIBRILLATION
     Route: 048
     Dates: start: 20120406, end: 20131214
  3. ASPIRIN [Suspect]
     Indication: PRODUCT USED FOR UNKNOWN INDICATION
     Route: 048
     Dates: end: 201307
  4. ASPIRIN [Suspect]
     Indication: PRODUCT USED FOR UNKNOWN INDICATION
     Route: 048
  5. ALPRAZOLAM [Concomitant]
     Indication: ANXIETY
     Dosage: IN NIGHT
     Route: 048
     Dates: start: 201212
  6. VITAMIN C [Concomitant]
     Route: 048
  7. VITAMIN B COMPLEX [Concomitant]
     Route: 048
  8. VITAMIN D2 [Concomitant]
     Route: 048
  9. PROPAFENONE [Concomitant]
     Route: 048
     Dates: start: 201104
  10. PROTONIX [Concomitant]
     Route: 048
     Dates: start: 201311
  11. IBUPROFEN [Concomitant]
     Dosage: AS NEEDED
     Route: 048
     Dates: end: 201311

REACTIONS (1)
  - Haemoptysis [Fatal]
